FAERS Safety Report 7500738-3 (Version None)
Quarter: 2011Q2

REPORT INFORMATION
  Report Type: 
  Country: None (occurrence: None)
  Receive Date: 20110517
  Receipt Date: 20110505
  Transmission Date: 20111010
  Serious: Yes (Life-Threatening, Other)
  Sender: FDA-Public Use
  Company Number: DSU-2010-02105

PATIENT
  Age: 42 Year
  Sex: Male
  Weight: 90 kg

DRUGS (5)
  1. OMETEC PLUS(HYDROCHLOROTHIAZIDE, OLMESARTAN MEDOXOMIL)(TABLET)(HYDROCH [Suspect]
     Dosage: 40/12.5 MG  (QD),PER ORAL, 40/25 MG (OD),PER ORAL
     Route: 048
     Dates: start: 20100201, end: 20100201
  2. OMETEC PLUS(HYDROCHLOROTHIAZIDE, OLMESARTAN MEDOXOMIL)(TABLET)(HYDROCH [Suspect]
     Dosage: 40/12.5 MG  (QD),PER ORAL, 40/25 MG (OD),PER ORAL
     Route: 048
     Dates: end: 20100101
  3. OLMESARTAN MEDOXOMIL [Suspect]
     Indication: PRODUCT USED FOR UNKNOWN INDICATION
     Dosage: 20 MG (20 MG,QD),PER ORAL, 40 MG (40 MG,QD),PER ORAL
     Route: 048
     Dates: end: 20091001
  4. OLMESARTAN MEDOXOMIL [Suspect]
     Indication: PRODUCT USED FOR UNKNOWN INDICATION
     Dosage: 20 MG (20 MG,QD),PER ORAL, 40 MG (40 MG,QD),PER ORAL
     Route: 048
     Dates: start: 20091001
  5. NOTEN(ATENOLOL)(50 MILLIGRAM)(ATENOLOL) [Suspect]
     Indication: ISCHAEMIA
     Dates: end: 20100101

REACTIONS (23)
  - RENAL FUNCTION TEST ABNORMAL [None]
  - SYNCOPE [None]
  - HEADACHE [None]
  - FLUID RETENTION [None]
  - ABNORMAL WEIGHT GAIN [None]
  - HEART RATE INCREASED [None]
  - DIZZINESS [None]
  - TACHYCARDIA [None]
  - DIARRHOEA [None]
  - HYPERSOMNIA [None]
  - LETHARGY [None]
  - BLOOD PRESSURE FLUCTUATION [None]
  - FATIGUE [None]
  - BLOOD PRESSURE INADEQUATELY CONTROLLED [None]
  - NEPHROLITHIASIS [None]
  - PRODUCTIVE COUGH [None]
  - SWELLING [None]
  - HYPERHIDROSIS [None]
  - ISCHAEMIA [None]
  - OEDEMA PERIPHERAL [None]
  - COUGH [None]
  - ANURIA [None]
  - DYSPNOEA [None]
